FAERS Safety Report 25149959 (Version 1)
Quarter: 2025Q2

REPORT INFORMATION
  Report Type: Report from Study
  Country: US (occurrence: US)
  Receive Date: 20250402
  Receipt Date: 20250402
  Transmission Date: 20250716
  Serious: No
  Sender: ASTELLAS
  Company Number: US-ASTELLAS-2025-AER-016547

PATIENT
  Age: 55 Year

DRUGS (1)
  1. FEZOLINETANT [Suspect]
     Active Substance: FEZOLINETANT
     Indication: Product used for unknown indication
     Route: 050
     Dates: end: 20250307

REACTIONS (1)
  - Hepatic enzyme increased [Unknown]

NARRATIVE: CASE EVENT DATE: 20250228
